FAERS Safety Report 19399653 (Version 1)
Quarter: 2021Q2

REPORT INFORMATION
  Report Type: Spontaneous
  Country: US (occurrence: US)
  Receive Date: 20210610
  Receipt Date: 20210610
  Transmission Date: 20210717
  Serious: Yes (Death, Hospitalization, Disabling)
  Sender: FDA-Public Use
  Company Number: US-SAREPTA THERAPEUTICS INC.-SRP2021-001476

PATIENT
  Age: 19 Year
  Sex: Male
  Weight: 75.74 kg

DRUGS (1)
  1. EXONDYS 51 [Suspect]
     Active Substance: ETEPLIRSEN
     Indication: DUCHENNE MUSCULAR DYSTROPHY
     Dosage: 2000 MILLIGRAM, WEEKLY
     Route: 042

REACTIONS (2)
  - Respiratory failure [Unknown]
  - Death [Fatal]

NARRATIVE: CASE EVENT DATE: 202106
